FAERS Safety Report 13531714 (Version 1)
Quarter: 2017Q2

REPORT INFORMATION
  Report Type: Spontaneous
  Country: US (occurrence: US)
  Receive Date: 20170510
  Receipt Date: 20170510
  Transmission Date: 20170830
  Serious: Yes (Other)
  Sender: FDA-Public Use
  Company Number: US-CONCORDIA PHARMACEUTICALS INC.-GSH201705-002834

PATIENT
  Sex: Female

DRUGS (12)
  1. ANSAID [Concomitant]
     Active Substance: FLURBIPROFEN
     Dates: start: 20160701, end: 20161227
  2. ENBREL [Suspect]
     Active Substance: ETANERCEPT
     Indication: RHEUMATOID ARTHRITIS
     Route: 065
  3. SIMPONI [Suspect]
     Active Substance: GOLIMUMAB
     Indication: RHEUMATOID ARTHRITIS
     Route: 065
  4. AMITRIPTYLINE [Concomitant]
     Active Substance: AMITRIPTYLINE
     Dates: start: 20140227
  5. REMICADE [Concomitant]
     Active Substance: INFLIXIMAB
  6. FLEXERIL [Concomitant]
     Active Substance: CYCLOBENZAPRINE HYDROCHLORIDE
     Dates: start: 20120202
  7. PLAQUENIL [Suspect]
     Active Substance: HYDROXYCHLOROQUINE SULFATE
     Indication: RHEUMATOID ARTHRITIS
     Route: 065
  8. HYDROCHLOROTHIAZIDE/TRIAMTERENE [Concomitant]
     Active Substance: HYDROCHLOROTHIAZIDE\TRIAMTERENE
     Dates: start: 20120214
  9. METHOTREXATE. [Suspect]
     Active Substance: METHOTREXATE
     Indication: RHEUMATOID ARTHRITIS
     Route: 065
  10. ARAVA [Suspect]
     Active Substance: LEFLUNOMIDE
     Indication: RHEUMATOID ARTHRITIS
     Route: 048
     Dates: start: 20160628, end: 20161224
  11. GOLD SODIUM THIOMALATE [Concomitant]
     Active Substance: GOLD SODIUM THIOMALATE
  12. MEDROL [Concomitant]
     Active Substance: METHYLPREDNISOLONE

REACTIONS (10)
  - Drug ineffective [Unknown]
  - Eye disorder [Unknown]
  - Arthritis [Not Recovered/Not Resolved]
  - Back pain [Not Recovered/Not Resolved]
  - Rheumatoid arthritis [Not Recovered/Not Resolved]
  - Bursitis [Not Recovered/Not Resolved]
  - Crepitations [Not Recovered/Not Resolved]
  - Enthesopathy [Not Recovered/Not Resolved]
  - Scar [Not Recovered/Not Resolved]
  - Pain [Not Recovered/Not Resolved]
